FAERS Safety Report 16861734 (Version 2)
Quarter: 2019Q4

REPORT INFORMATION
  Report Type: Report from Study
  Country: DE (occurrence: DE)
  Receive Date: 20190927
  Receipt Date: 20191004
  Transmission Date: 20200122
  Serious: Yes (Hospitalization)
  Sender: FDA-Public Use
  Company Number: DE-SUN PHARMACEUTICAL INDUSTRIES LTD-2019RR-221866

PATIENT
  Sex: Female

DRUGS (1)
  1. ILUMETRI 100 MG, INJEKTIONSL?SUNG [Suspect]
     Active Substance: TILDRAKIZUMAB
     Indication: PSORIASIS
     Dosage: 100 UNK, UNK
     Route: 058
     Dates: start: 20190201, end: 20190611

REACTIONS (2)
  - Cholecystitis acute [Recovered/Resolved]
  - Hepatic cirrhosis [Recovered/Resolved]
